FAERS Safety Report 10258107 (Version 2)
Quarter: 2014Q3

REPORT INFORMATION
  Report Type: Spontaneous
  Country: US (occurrence: US)
  Receive Date: 20140625
  Receipt Date: 20140717
  Transmission Date: 20150326
  Serious: Yes (Death, Hospitalization, Other)
  Sender: FDA-Public Use
  Company Number: US-PURDUE-USA-2014-0115076

PATIENT
  Age: 72 Year
  Sex: Male

DRUGS (3)
  1. BUTRANS [Suspect]
     Active Substance: BUPRENORPHINE
     Dosage: 10 MCG/HR, WEEKLY
     Route: 062
  2. BUTRANS [Suspect]
     Active Substance: BUPRENORPHINE
     Dosage: 10 MCG/HR, WEEKLY
     Route: 062
  3. BUTRANS [Suspect]
     Active Substance: BUPRENORPHINE
     Indication: PAIN
     Dosage: 20 MCG/HR, WEEKLY
     Route: 062
     Dates: start: 20140611, end: 20140618

REACTIONS (7)
  - Hypophagia [Unknown]
  - Hypernatraemia [Unknown]
  - Dehydration [Unknown]
  - Death [Fatal]
  - Extra dose administered [Recovered/Resolved]
  - Encephalopathy [Unknown]
  - Confusional state [Unknown]

NARRATIVE: CASE EVENT DATE: 20140620
